FAERS Safety Report 5443725-1 (Version None)
Quarter: 2007Q3

REPORT INFORMATION
  Report Type: 
  Country: None (occurrence: None)
  Receive Date: 20070731
  Receipt Date: 20070511
  Transmission Date: 20080115
  Serious: No
  Sender: FDA-Public Use
  Company Number: US200706001077

PATIENT
  Age: 64 Year
  Sex: Male

DRUGS (6)
  1. BYETTA [Suspect]
     Indication: TYPE 2 DIABETES MELLITUS
     Dosage: 5 UG, 2/D, SUBCUTANEOUS  10 UG, 2/D, SUBCUTANEOUS   5 UG, 2/D, SUBCUTANEOUS  10 UG, 2/D, SQ
     Route: 058
     Dates: start: 20050101, end: 20070301
  2. BYETTA [Suspect]
     Indication: TYPE 2 DIABETES MELLITUS
     Dosage: 5 UG, 2/D, SUBCUTANEOUS  10 UG, 2/D, SUBCUTANEOUS   5 UG, 2/D, SUBCUTANEOUS  10 UG, 2/D, SQ
     Route: 058
     Dates: start: 20070201, end: 20070301
  3. BYETTA [Suspect]
     Indication: TYPE 2 DIABETES MELLITUS
     Dosage: 5 UG, 2/D, SUBCUTANEOUS  10 UG, 2/D, SUBCUTANEOUS   5 UG, 2/D, SUBCUTANEOUS  10 UG, 2/D, SQ
     Route: 058
     Dates: start: 20060101
  4. BYETTA [Suspect]
     Indication: TYPE 2 DIABETES MELLITUS
     Dosage: 5 UG, 2/D, SUBCUTANEOUS  10 UG, 2/D, SUBCUTANEOUS   5 UG, 2/D, SUBCUTANEOUS  10 UG, 2/D, SQ
     Route: 058
     Dates: start: 20070301
  5. METFORMIN HCL [Concomitant]
  6. GLYBURIDE [Concomitant]

REACTIONS (2)
  - BLOOD GLUCOSE INCREASED [None]
  - WEIGHT DECREASED [None]
